FAERS Safety Report 6753314-4 (Version None)
Quarter: 2010Q2

REPORT INFORMATION
  Report Type: 
  Country: None (occurrence: None)
  Receive Date: 20100601
  Receipt Date: 20100520
  Transmission Date: 20101027
  Serious: Yes (Other)
  Sender: FDA-Public Use
  Company Number: 2010US001658

PATIENT
  Age: 54 Year
  Sex: Male

DRUGS (1)
  1. AMEVIVE [Suspect]
     Indication: PSORIASIS
     Dosage: 15 MG, D, INTRAMUSCULAR
     Route: 030
     Dates: start: 20060101

REACTIONS (6)
  - ACUTE DISSEMINATED ENCEPHALOMYELITIS [None]
  - DIZZINESS [None]
  - MULTIPLE SCLEROSIS [None]
  - NEUROLOGICAL SYMPTOM [None]
  - PROGRESSIVE MULTIFOCAL LEUKOENCEPHALOPATHY [None]
  - VISUAL IMPAIRMENT [None]
